FAERS Safety Report 9215552 (Version 4)
Quarter: 2014Q1

REPORT INFORMATION
  Report Type: Spontaneous
  Country: US (occurrence: US)
  Receive Date: 20130407
  Receipt Date: 20140116
  Transmission Date: 20141002
  Serious: Yes (Hospitalization, Other)
  Sender: FDA-Public Use
  Company Number: US-AMGEN-USASP2013023702

PATIENT
  Age: 64 Year
  Sex: Female
  Weight: 87.52 kg

DRUGS (5)
  1. ENBREL [Suspect]
     Indication: RHEUMATOID ARTHRITIS
     Dosage: 50 MG, QWK
     Route: 058
     Dates: start: 20041101
  2. ENBREL [Suspect]
     Dosage: UNK
     Route: 065
  3. CELEBREX [Concomitant]
     Dosage: 200 MG, OD  UNK
     Route: 048
  4. MEDROL                             /00049601/ [Concomitant]
     Dosage: UNK UNK, AS NECESSARY
     Route: 048
  5. ULTRACET [Concomitant]
     Dosage: UNK

REACTIONS (9)
  - Hip arthroplasty [Recovered/Resolved]
  - Osteonecrosis [Not Recovered/Not Resolved]
  - Respiratory tract congestion [Not Recovered/Not Resolved]
  - Increased upper airway secretion [Not Recovered/Not Resolved]
  - Sneezing [Not Recovered/Not Resolved]
  - Productive cough [Not Recovered/Not Resolved]
  - Musculoskeletal discomfort [Not Recovered/Not Resolved]
  - Discomfort [Not Recovered/Not Resolved]
  - Injection site pain [Not Recovered/Not Resolved]
